FAERS Safety Report 5036059-0 (Version None)
Quarter: 2006Q2

REPORT INFORMATION
  Report Type: 
  Country: None (occurrence: None)
  Receive Date: 20060530
  Receipt Date: 20060224
  Transmission Date: 20061013
  Serious: No
  Sender: FDA-Public Use
  Company Number: MPS1-10501

PATIENT
  Age: 5 Year
  Sex: Male
  Weight: 15 kg

DRUGS (3)
  1. ALDURAZYME [Suspect]
     Indication: MUCOPOLYSACCHARIDOSIS I
     Dosage: MG/KG QWK IV
     Route: 042
     Dates: start: 20051129
  2. POLARAMINE [Concomitant]
  3. ACETAMINOPHEN [Concomitant]

REACTIONS (1)
  - VOMITING [None]
